FAERS Safety Report 13474620 (Version 1)
Quarter: 2017Q2

REPORT INFORMATION
  Report Type: Spontaneous
  Country: CA (occurrence: CA)
  Receive Date: 20170424
  Receipt Date: 20170424
  Transmission Date: 20170830
  Serious: Yes (Other)
  Sender: FDA-Public Use
  Company Number: CA-BAYER-2017-071768

PATIENT

DRUGS (2)
  1. ASPIRIN. [Suspect]
     Active Substance: ASPIRIN
     Dosage: UNK
     Dates: start: 2017
  2. ASPIRIN. [Suspect]
     Active Substance: ASPIRIN
     Dosage: UNK
     Dates: start: 2017

REACTIONS (4)
  - Pain [None]
  - Urticaria [None]
  - Angina pectoris [None]
  - Chest pain [None]

NARRATIVE: CASE EVENT DATE: 2017
